FAERS Safety Report 6964518-X (Version None)
Quarter: 2010Q3

REPORT INFORMATION
  Report Type: 
  Country: None (occurrence: None)
  Receive Date: 20100903
  Receipt Date: 20100819
  Transmission Date: 20110219
  Serious: Yes (Other)
  Sender: FDA-Public Use
  Company Number: BR-JNJFOC-20100807519

PATIENT
  Age: 36 Year
  Sex: Female
  Weight: 62 kg

DRUGS (1)
  1. ORTHO EVRA [Suspect]
     Indication: CONTRACEPTION
     Dosage: ETHINYL ESTRADIOL 0.6 MG/ NORELGESTROMIN 6 MG
     Route: 062

REACTIONS (8)
  - BREAST PAIN [None]
  - DIZZINESS [None]
  - HEADACHE [None]
  - INFLUENZA [None]
  - NAUSEA [None]
  - PRODUCT QUALITY ISSUE [None]
  - SYNCOPE [None]
  - WRONG TECHNIQUE IN DRUG USAGE PROCESS [None]
